FAERS Safety Report 4482570-0 (Version None)
Quarter: 2004Q4

REPORT INFORMATION
  Report Type: 
  Country: None (occurrence: None)
  Receive Date: 20041022
  Receipt Date: 20041012
  Transmission Date: 20050328
  Serious: Yes (Hospitalization)
  Sender: FDA-Public Use
  Company Number: JP-JNJFOC-20041003172

PATIENT
  Age: 83 Year
  Sex: Male

DRUGS (4)
  1. LEVOFLOXACIN [Suspect]
     Route: 049
     Dates: start: 20040806, end: 20040812
  2. PLACEBO [Suspect]
     Indication: DRUG USE FOR UNKNOWN INDICATION
     Route: 065
  3. TAXOTERE [Concomitant]
     Dates: start: 20040802, end: 20040802
  4. CARBOPLATIN [Concomitant]
     Dates: start: 20040802, end: 20040802

REACTIONS (3)
  - ATRIAL FIBRILLATION [None]
  - CLOSTRIDIUM COLITIS [None]
  - TACHYARRHYTHMIA [None]
